FAERS Safety Report 8588666-6 (Version None)
Quarter: 2012Q3

REPORT INFORMATION
  Report Type: 
  Country: None (occurrence: None)
  Receive Date: 20120813
  Receipt Date: 20120801
  Transmission Date: 20120928
  Serious: Yes (Hospitalization)
  Sender: FDA-Public Use
  Company Number: US-BAYER-2012-079077

PATIENT
  Age: 31 Year
  Sex: Female
  Weight: 102 kg

DRUGS (13)
  1. DARVON [Concomitant]
     Dosage: UNK UNK, PRN
  2. MOTRIN [Concomitant]
     Indication: PROCEDURAL PAIN
     Dosage: UNK
     Dates: start: 20061214
  3. COMBIVENT [Concomitant]
     Dosage: 2 PUFFS, QID
  4. YAZ [Suspect]
     Dosage: UNK
     Dates: start: 20061001, end: 20061212
  5. YASMIN [Suspect]
     Dosage: UNK
     Dates: start: 20061001, end: 20061212
  6. VISTARIL [Concomitant]
     Dosage: UNK UNK, PRN
  7. VICODIN [Concomitant]
     Indication: PROCEDURAL PAIN
  8. COUMADIN [Concomitant]
     Indication: PULMONARY EMBOLISM
     Dosage: 3 MG, EACH EVENING
  9. TYLOX [Concomitant]
     Indication: PROCEDURAL PAIN
     Dosage: UNK
     Dates: start: 20061214
  10. NEXIUM [Concomitant]
  11. DROSPIRENONE AND ETHINYL ESTRADIOL [Suspect]
     Dosage: UNK
     Dates: start: 20061001, end: 20061212
  12. COUMADIN [Concomitant]
     Indication: DEEP VEIN THROMBOSIS
  13. PHENERGAN HCL [Concomitant]
     Indication: NAUSEA
     Dosage: UNK UNK, PRN

REACTIONS (2)
  - PULMONARY EMBOLISM [None]
  - DEEP VEIN THROMBOSIS [None]
